FAERS Safety Report 5286978-5 (Version None)
Quarter: 2007Q1

REPORT INFORMATION
  Report Type: 
  Country: None (occurrence: None)
  Receive Date: 20070329
  Receipt Date: 20070322
  Transmission Date: 20070707
  Serious: Yes (Hospitalization)
  Sender: FDA-Public Use
  Company Number: 238701

PATIENT
  Age: 58 Year
  Sex: Male

DRUGS (3)
  1. GRTPA  (ALTEPLASE) PWDR + SOLVENT, INFUSION SOLN [Suspect]
     Indication: CEREBRAL INFARCTION
     Dosage: 40 ML, SINGLE, INTRAVENOUS
     Route: 042
     Dates: start: 20061127, end: 20061127
  2. LANSOPRAZOLE [Concomitant]
  3. HEPARIN [Concomitant]

REACTIONS (2)
  - HAEMORRHAGIC CEREBRAL INFARCTION [None]
  - VENOUS THROMBOSIS [None]
